FAERS Safety Report 24220851 (Version 4)
Quarter: 2024Q3

REPORT INFORMATION
  Report Type: Spontaneous
  Country: US (occurrence: US)
  Receive Date: 20240818
  Receipt Date: 20240823
  Transmission Date: 20241016
  Serious: Yes (Other)
  Sender: ROCHE
  Company Number: US-ROCHE-10000056210

PATIENT
  Age: 75 Year
  Sex: Female
  Weight: 62.6 kg

DRUGS (10)
  1. ACTEMRA [Suspect]
     Active Substance: TOCILIZUMAB
     Indication: Rheumatoid arthritis
     Dosage: STRENGTH: 162 MG/0.9 ML
     Route: 058
     Dates: start: 202107
  2. ACTEMRA [Suspect]
     Active Substance: TOCILIZUMAB
     Indication: Giant cell arteritis
     Route: 058
     Dates: start: 2021
  3. ANASTROZOLE [Suspect]
     Active Substance: ANASTROZOLE
     Indication: Neoplasm malignant
     Dosage: TREATMENT IS FOR 5 YEARS
     Route: 048
     Dates: start: 202311
  4. CELEBREX [Suspect]
     Active Substance: CELECOXIB
     Indication: Osteoarthritis
     Route: 065
     Dates: end: 2024
  5. CELEBREX [Suspect]
     Active Substance: CELECOXIB
     Indication: Arthralgia
  6. GABAPENTIN [Suspect]
     Active Substance: GABAPENTIN
     Indication: Hot flush
     Route: 065
     Dates: start: 202402, end: 2024
  7. ATORVASTATIN [Concomitant]
     Active Substance: ATORVASTATIN
     Indication: Blood cholesterol
     Dosage: 2 OR 3 TIMES A WEEK
     Route: 048
  8. TYLENOL [Concomitant]
     Active Substance: ACETAMINOPHEN
     Indication: Osteoarthritis
  9. TYLENOL [Concomitant]
     Active Substance: ACETAMINOPHEN
     Indication: Arthralgia
  10. CALCIUM SUPPLEMENT WITH VITAMIN D [Concomitant]
     Indication: Osteopenia
     Route: 048

REACTIONS (11)
  - Hot flush [Unknown]
  - Cataract [Not Recovered/Not Resolved]
  - Lymphoedema [Unknown]
  - Pruritus [Not Recovered/Not Resolved]
  - Erythema [Not Recovered/Not Resolved]
  - Ill-defined disorder [Not Recovered/Not Resolved]
  - Mass [Not Recovered/Not Resolved]
  - Somnolence [Unknown]
  - Product knowledge deficit [Unknown]
  - Breast cancer [Unknown]
  - Device defective [Unknown]

NARRATIVE: CASE EVENT DATE: 20240701
